FAERS Safety Report 8409960-5 (Version None)
Quarter: 2012Q2

REPORT INFORMATION
  Report Type: 
  Country: None (occurrence: None)
  Receive Date: 20120605
  Receipt Date: 20120525
  Transmission Date: 20120825
  Serious: Yes (Other)
  Sender: FDA-Public Use
  Company Number: JP-BRISTOL-MYERS SQUIBB COMPANY-16472730

PATIENT
  Age: 62 Year
  Sex: Female

DRUGS (9)
  1. LOCHOLEST [Concomitant]
  2. MAGLAX [Concomitant]
  3. ADENOSINE [Concomitant]
  4. VITAMIN B12 [Concomitant]
  5. METFORMIN HCL [Suspect]
     Indication: TYPE 2 DIABETES MELLITUS
     Dosage: 10JUN11 TO 13OCT11 14OCT11-UNK;141D,24DEC11-02MAR12;69D;500MG
     Route: 048
     Dates: start: 20111014, end: 20120302
  6. MUCOSTA [Concomitant]
  7. AMARYL [Concomitant]
     Dates: end: 20111224
  8. ISOSORBIDE DINITRATE [Concomitant]
  9. NESINA [Suspect]
     Route: 048

REACTIONS (3)
  - MENTAL IMPAIRMENT [None]
  - DIZZINESS [None]
  - TREMOR [None]
